FAERS Safety Report 10913271 (Version 1)
Quarter: 2015Q1

REPORT INFORMATION
  Report Type: Spontaneous
  Country: US (occurrence: None)
  Receive Date: 20150311
  Receipt Date: 20150311
  Transmission Date: 20150721
  Serious: Yes (Life-Threatening)
  Sender: FDA-Public Use
  Company Number: None

PATIENT
  Age: 45 Year
  Sex: Female

DRUGS (7)
  1. TRINORINYL (BIRTH CONTROL) [Concomitant]
  2. AVELOX [Suspect]
     Active Substance: MOXIFLOXACIN HYDROCHLORIDE
     Indication: SINUSITIS
     Dosage: 1 PILL, ONCE DAILY, TAKEN BY MOUTH
     Route: 048
     Dates: start: 20150220
  3. ZYRTEC [Concomitant]
     Active Substance: CETIRIZINE HYDROCHLORIDE
  4. SINGULAIR [Concomitant]
     Active Substance: MONTELUKAST SODIUM
  5. VITAMIN C [Concomitant]
     Active Substance: ASCORBIC ACID
  6. ZOLOFT [Concomitant]
     Active Substance: SERTRALINE HYDROCHLORIDE
  7. FISH OIL [Concomitant]
     Active Substance: FISH OIL

REACTIONS (2)
  - Drug ineffective [None]
  - Anaphylactic reaction [None]

NARRATIVE: CASE EVENT DATE: 20150220
